FAERS Safety Report 9284236 (Version 1)
Quarter: 2013Q2

REPORT INFORMATION
  Report Type: Spontaneous
  Country: TR (occurrence: TR)
  Receive Date: 20130510
  Receipt Date: 20130510
  Transmission Date: 20140414
  Serious: Yes (Hospitalization, Other)
  Sender: FDA-Public Use
  Company Number: TR-ELI_LILLY_AND_COMPANY-TR201305001180

PATIENT
  Age: 53 Year
  Sex: Female

DRUGS (3)
  1. FLUOXETINE HYDROCHLORIDE [Suspect]
     Indication: RESTLESS LEGS SYNDROME
     Dosage: 20 MG, QD
  2. ERGOTAMINE TARTRATE [Interacting]
     Indication: MIGRAINE
     Dosage: 1.5 MG, QD
  3. PRAMIPEXOLE [Concomitant]
     Indication: RESTLESS LEGS SYNDROME
     Dosage: 0.25 MG, QD

REACTIONS (5)
  - Stress cardiomyopathy [Recovered/Resolved]
  - Respiratory tract infection [Unknown]
  - Migraine [Unknown]
  - Off label use [Unknown]
  - Drug interaction [Unknown]
